FAERS Safety Report 6511546-4 (Version None)
Quarter: 2009Q4

REPORT INFORMATION
  Report Type: 
  Country: None (occurrence: None)
  Receive Date: 20091222
  Receipt Date: 20090417
  Transmission Date: 20100525
  Serious: No
  Sender: FDA-Public Use
  Company Number: CA-ASTRAZENECA-2009UW09824

PATIENT
  Age: 783 Month
  Sex: Male
  Weight: 78 kg

DRUGS (3)
  1. CRESTOR [Suspect]
     Indication: HYPERCHOLESTEROLAEMIA
     Route: 048
     Dates: start: 20080405
  2. MONOCOR [Concomitant]
  3. ASAPHINE [Concomitant]

REACTIONS (1)
  - COUGH [None]
